FAERS Safety Report 9053581 (Version 1)
Quarter: 2013Q1

REPORT INFORMATION
  Report Type: Spontaneous
  Country: US (occurrence: US)
  Receive Date: 20130208
  Receipt Date: 20130208
  Transmission Date: 20140127
  Serious: No
  Sender: FDA-Public Use
  Company Number: US-TARO-2012P1065370

PATIENT
  Sex: Female

DRUGS (4)
  1. NYSTATIN + TRIAMCINOLONE ACETONIDE CREAM USP [Suspect]
     Indication: VULVOVAGINAL PRURITUS
     Dates: start: 20121115, end: 20121115
  2. NYSTATIN + TRIAMCINOLONE ACETONIDE CREAM USP [Suspect]
     Indication: VULVOVAGINAL PRURITUS
     Dates: start: 20121118, end: 20121118
  3. NYSTATIN + TRIAMCINOLONE ACETONIDE CREAM USP [Suspect]
     Indication: VULVOVAGINAL PRURITUS
     Dates: start: 20121119, end: 20121119
  4. NYSTATIN + TRIAMCINOLONE ACETONIDE CREAM USP [Suspect]
     Indication: VULVOVAGINAL PRURITUS

REACTIONS (2)
  - Drug dose omission [Recovered/Resolved]
  - Drug ineffective [Not Recovered/Not Resolved]
